FAERS Safety Report 5393545-1 (Version None)
Quarter: 2007Q3

REPORT INFORMATION
  Report Type: 
  Country: None (occurrence: None)
  Receive Date: 20070723
  Receipt Date: 20060807
  Transmission Date: 20080115
  Serious: No
  Sender: FDA-Public Use
  Company Number: A0615626A

PATIENT
  Age: 62 Year
  Sex: Male

DRUGS (3)
  1. AVANDIA [Suspect]
     Dosage: 4MG TWICE PER DAY
     Route: 048
     Dates: end: 20051101
  2. METFORMIN HCL [Suspect]
  3. CRESTOR [Concomitant]

REACTIONS (1)
  - BLOOD GLUCOSE INCREASED [None]
